FAERS Safety Report 5045474-0 (Version None)
Quarter: 2006Q2

REPORT INFORMATION
  Report Type: 
  Country: None (occurrence: None)
  Receive Date: 20060629
  Receipt Date: 20060620
  Transmission Date: 20061013
  Serious: Yes (Other)
  Sender: FDA-Public Use
  Company Number: 2006079022

PATIENT
  Age: 49 Year
  Sex: Female
  Weight: 77.1115 kg

DRUGS (3)
  1. LYRICA [Suspect]
     Indication: PLANTAR FASCIITIS
     Dosage: 100 MG (50 MG, 2 IN 1 D); UNKNOWN
     Dates: start: 20060619, end: 20060619
  2. AVALIDE [Concomitant]
  3. ZYRTEC [Concomitant]

REACTIONS (5)
  - DELUSION [None]
  - DIZZINESS [None]
  - EUPHORIC MOOD [None]
  - FALL [None]
  - VISION BLURRED [None]
